FAERS Safety Report 19101964 (Version 3)
Quarter: 2021Q2

REPORT INFORMATION
  Report Type: Spontaneous
  Country: US (occurrence: US)
  Receive Date: 20210407
  Receipt Date: 20210629
  Transmission Date: 20210717
  Serious: Yes (Other)
  Sender: FDA-Public Use
  Company Number: US-SA-2021SA114104

PATIENT
  Age: 68 Year
  Sex: Female

DRUGS (2)
  1. DALFAMPRIDINE. [Concomitant]
     Active Substance: DALFAMPRIDINE
  2. AUBAGIO [Suspect]
     Active Substance: TERIFLUNOMIDE
     Indication: MULTIPLE SCLEROSIS
     Dosage: 14 MG, QD
     Route: 048
     Dates: start: 20180221

REACTIONS (7)
  - Multiple sclerosis [Unknown]
  - Sensory loss [Not Recovered/Not Resolved]
  - Dizziness [Unknown]
  - Visual impairment [Not Recovered/Not Resolved]
  - Fall [Unknown]
  - Multiple sclerosis relapse [Not Recovered/Not Resolved]
  - Weight decreased [Not Recovered/Not Resolved]

NARRATIVE: CASE EVENT DATE: 20210315
